FAERS Safety Report 15677909 (Version 6)
Quarter: 2020Q1

REPORT INFORMATION
  Report Type: Spontaneous
  Country: US (occurrence: US)
  Receive Date: 20181130
  Receipt Date: 20200107
  Transmission Date: 20200409
  Serious: Yes (Hospitalization)
  Sender: FDA-Public Use
  Company Number: US-ACTELION-A-US2018-182650

PATIENT
  Age: 29 Year
  Sex: Female
  Weight: 67.57 kg

DRUGS (4)
  1. VELETRI [Suspect]
     Active Substance: EPOPROSTENOL
     Dosage: 16 NG/KG, PER MIN
     Route: 042
  2. VELETRI [Suspect]
     Active Substance: EPOPROSTENOL
     Indication: PULMONARY HYPERTENSION
     Dosage: 7 NG/KG, PER MIN
     Route: 042
  3. VELETRI [Suspect]
     Active Substance: EPOPROSTENOL
     Dosage: 9 NG/KG, PER MIN
     Route: 042
  4. VELETRI [Suspect]
     Active Substance: EPOPROSTENOL
     Dosage: 20.2 NG/KG, PER MIN
     Route: 042

REACTIONS (9)
  - Chest discomfort [Unknown]
  - Nausea [Unknown]
  - Fungal infection [Unknown]
  - Dizziness [Unknown]
  - Urticaria [Unknown]
  - Hospitalisation [Unknown]
  - Rash [Unknown]
  - Flushing [Unknown]
  - Hypertension [Unknown]

NARRATIVE: CASE EVENT DATE: 20190205
